FAERS Safety Report 11260112 (Version 1)
Quarter: 2015Q3

REPORT INFORMATION
  Report Type: Spontaneous
  Country: US (occurrence: US)
  Receive Date: 20150710
  Receipt Date: 20150710
  Transmission Date: 20151125
  Serious: Yes (Other)
  Sender: FDA-Public Use
  Company Number: US-TEVA-576843USA

PATIENT
  Age: 41 Year
  Sex: Female
  Weight: 65.5 kg

DRUGS (1)
  1. HYDROXYCHLOROQUINE [Suspect]
     Active Substance: HYDROXYCHLOROQUINE
     Indication: SYSTEMIC LUPUS ERYTHEMATOSUS
     Dosage: 400 MG/DAY FOR 5.8 YEARS
     Route: 065

REACTIONS (3)
  - Visual field defect [Unknown]
  - Retinopathy [Unknown]
  - Maculopathy [Unknown]
